FAERS Safety Report 7172022-1 (Version None)
Quarter: 2010Q4

REPORT INFORMATION
  Report Type: 
  Country: None (occurrence: None)
  Receive Date: 20101217
  Receipt Date: 20100127
  Transmission Date: 20110411
  Serious: No
  Sender: FDA-Public Use
  Company Number: US-AMGEN-KDL388890

PATIENT

DRUGS (7)
  1. ENBREL [Suspect]
     Indication: PRODUCT USED FOR UNKNOWN INDICATION
     Dosage: 50 MG, QWK
     Route: 058
  2. METHOTREXATE [Concomitant]
  3. LOSARTAN POTASSIUM [Concomitant]
     Dosage: 25 MG, UNK
  4. FLUTICASONE/SALMETEROL [Concomitant]
  5. ESCITALOPRAM [Concomitant]
     Dosage: 10 MG, UNK
  6. MULTI-VITAMINS [Concomitant]
     Dosage: UNK UNK, UNK
  7. FOLIC ACID [Concomitant]
     Dosage: 200 A?G, UNK

REACTIONS (2)
  - INJECTION SITE ERYTHEMA [None]
  - INJECTION SITE PAIN [None]
